FAERS Safety Report 15166721 (Version 4)
Quarter: 2018Q4

REPORT INFORMATION
  Report Type: Report from Study
  Country: BR (occurrence: BR)
  Receive Date: 20180719
  Receipt Date: 20181220
  Transmission Date: 20190204
  Serious: Yes (Other)
  Sender: FDA-Public Use
  Company Number: PHHY2018BR037886

PATIENT
  Age: 50 Year
  Sex: Male
  Weight: 86 kg

DRUGS (3)
  1. COSENTYX [Suspect]
     Active Substance: SECUKINUMAB
     Indication: PSORIATIC ARTHROPATHY
     Dosage: 150 MG, QMO
     Route: 058
     Dates: start: 20171017
  2. COSENTYX [Suspect]
     Active Substance: SECUKINUMAB
     Indication: ANKYLOSING SPONDYLITIS
     Dosage: 150 MG, UNK
     Route: 058
     Dates: start: 20180421
  3. COSENTYX [Suspect]
     Active Substance: SECUKINUMAB
     Dosage: 300 MG, QMO
     Route: 058
     Dates: start: 20180517, end: 201805

REACTIONS (12)
  - Dizziness [Recovered/Resolved]
  - Malaise [Recovering/Resolving]
  - Hepatic haematoma [Unknown]
  - Pain [Recovering/Resolving]
  - Eye swelling [Not Recovered/Not Resolved]
  - Nausea [Recovering/Resolving]
  - Hypersensitivity [Unknown]
  - Eye infection [Not Recovered/Not Resolved]
  - Weight increased [Unknown]
  - Visual impairment [Not Recovered/Not Resolved]
  - Influenza [Recovered/Resolved]
  - Hepatic mass [Recovering/Resolving]

NARRATIVE: CASE EVENT DATE: 201807
